FAERS Safety Report 9058304 (Version 1)
Quarter: 2013Q1

REPORT INFORMATION
  Report Type: Report from Study
  Country: CA (occurrence: CA)
  Receive Date: 20130211
  Receipt Date: 20130211
  Transmission Date: 20140127
  Serious: Yes (Disabling)
  Sender: FDA-Public Use
  Company Number: CA-JNJFOC-20130117192

PATIENT
  Age: 56 None
  Sex: Female
  Weight: 57.7 kg

DRUGS (2)
  1. REMICADE [Suspect]
     Indication: CROHN^S DISEASE
     Route: 042
     Dates: start: 20080402, end: 20120214
  2. REMICADE [Suspect]
     Indication: CROHN^S DISEASE
     Route: 042
     Dates: end: 20130129

REACTIONS (3)
  - Paraesthesia [Unknown]
  - Headache [Unknown]
  - Dizziness [Unknown]
